FAERS Safety Report 21231842 (Version 4)
Quarter: 2023Q2

REPORT INFORMATION
  Report Type: Spontaneous
  Country: US (occurrence: US)
  Receive Date: 20220819
  Receipt Date: 20230426
  Transmission Date: 20230721
  Serious: Yes (Other)
  Sender: FDA-Public Use
  Company Number: US-BIOGEN-2022BI01148884

PATIENT
  Age: 56 Year
  Sex: Female
  Weight: 67.646 kg

DRUGS (39)
  1. VUMERITY [Suspect]
     Active Substance: DIROXIMEL FUMARATE
     Indication: Relapsing-remitting multiple sclerosis
     Route: 050
     Dates: start: 202104
  2. VUMERITY [Suspect]
     Active Substance: DIROXIMEL FUMARATE
     Dosage: STARTING DOSE
     Route: 050
     Dates: start: 20210422
  3. VUMERITY [Suspect]
     Active Substance: DIROXIMEL FUMARATE
     Dosage: MAINTENANCE DOSE
     Route: 050
  4. VUMERITY [Suspect]
     Active Substance: DIROXIMEL FUMARATE
     Dosage: MAINTENANCE DOSE
     Route: 050
     Dates: start: 20221003
  5. VUMERITY [Suspect]
     Active Substance: DIROXIMEL FUMARATE
     Route: 050
     Dates: start: 20210501, end: 202301
  6. VUMERITY [Suspect]
     Active Substance: DIROXIMEL FUMARATE
     Dosage: MAINTENANCE DOSE
     Route: 050
     Dates: start: 20210422, end: 20230111
  7. TECFIDERA [Suspect]
     Active Substance: DIMETHYL FUMARATE
     Indication: Multiple sclerosis
     Route: 050
  8. TECFIDERA [Suspect]
     Active Substance: DIMETHYL FUMARATE
     Dosage: STARTING DOSE
     Route: 050
     Dates: start: 20140103
  9. TECFIDERA [Suspect]
     Active Substance: DIMETHYL FUMARATE
     Dosage: MAINTENANCE DOSE
     Route: 050
  10. TECFIDERA [Suspect]
     Active Substance: DIMETHYL FUMARATE
     Dosage: STARTING DOSE
     Route: 050
     Dates: start: 20160122
  11. TECFIDERA [Suspect]
     Active Substance: DIMETHYL FUMARATE
     Dosage: MAINTENANCE DOSE
     Route: 050
     Dates: end: 20170217
  12. TECFIDERA [Suspect]
     Active Substance: DIMETHYL FUMARATE
     Dosage: STARTING DOSE
     Route: 050
     Dates: end: 20210422
  13. TECFIDERA [Suspect]
     Active Substance: DIMETHYL FUMARATE
     Dosage: MAINTENANCE DOSE
     Route: 050
  14. TECFIDERA [Suspect]
     Active Substance: DIMETHYL FUMARATE
     Dosage: MAINTENANCE DOSE
     Route: 050
     Dates: start: 20201222
  15. TECFIDERA [Suspect]
     Active Substance: DIMETHYL FUMARATE
     Route: 050
     Dates: start: 20210422
  16. TECFIDERA [Suspect]
     Active Substance: DIMETHYL FUMARATE
     Route: 050
     Dates: start: 20160122, end: 20170217
  17. TECFIDERA [Suspect]
     Active Substance: DIMETHYL FUMARATE
     Route: 050
     Dates: end: 20210422
  18. METHOCARBAMOL [Concomitant]
     Active Substance: METHOCARBAMOL
     Indication: Status migrainosus
     Dosage: AS NEEDED
     Route: 050
  19. METHOCARBAMOL [Concomitant]
     Active Substance: METHOCARBAMOL
     Route: 050
     Dates: start: 20220329
  20. ACETAMINOPHEN\BUTABARBITAL\CAFFEINE [Concomitant]
     Active Substance: ACETAMINOPHEN\BUTABARBITAL\CAFFEINE
     Indication: Product used for unknown indication
     Dosage: BUTALBITAL-APAP-CAFFEINE (50-325-40MG) ORAL TABLET, EVERY FOUR-SIX HOURS PRN
     Route: 050
     Dates: start: 20220329
  21. NEURONTIN [Concomitant]
     Active Substance: GABAPENTIN
     Indication: Product used for unknown indication
     Route: 050
     Dates: start: 20230301
  22. NEURONTIN [Concomitant]
     Active Substance: GABAPENTIN
     Route: 050
     Dates: start: 20220803
  23. NEURONTIN [Concomitant]
     Active Substance: GABAPENTIN
     Route: 050
  24. AIMOVIG [Concomitant]
     Active Substance: ERENUMAB-AOOE
     Indication: Product used for unknown indication
     Dosage: 140 MG/ML
     Route: 050
     Dates: start: 20230116
  25. AIMOVIG [Concomitant]
     Active Substance: ERENUMAB-AOOE
     Dosage: 140 MG/ML
     Route: 050
     Dates: start: 20221107
  26. AIMOVIG [Concomitant]
     Active Substance: ERENUMAB-AOOE
     Route: 050
     Dates: start: 20191111
  27. TRAMADOL [Concomitant]
     Active Substance: TRAMADOL
     Indication: Product used for unknown indication
     Route: 050
     Dates: start: 20230301
  28. TRAMADOL [Concomitant]
     Active Substance: TRAMADOL
     Route: 050
     Dates: start: 20221107
  29. NURTEC ODT [Concomitant]
     Active Substance: RIMEGEPANT SULFATE
     Indication: Product used for unknown indication
     Dosage: TAKE 1 TABLET AT ONSET OF HA AS NEEDED QD
     Route: 050
     Dates: start: 20210406
  30. PROVIGIL [Concomitant]
     Active Substance: MODAFINIL
     Indication: Multiple sclerosis
     Route: 050
     Dates: start: 20200331
  31. PROVIGIL [Concomitant]
     Active Substance: MODAFINIL
     Route: 050
     Dates: start: 20200331
  32. EMGALITY [Concomitant]
     Active Substance: GALCANEZUMAB-GNLM
     Indication: Multiple sclerosis
     Dosage: 120 MG/ML - DISCONTINUED DUE TO WEIGHT GAIN
     Route: 050
     Dates: start: 20190528
  33. MECLIZINE [Concomitant]
     Active Substance: MECLIZINE HYDROCHLORIDE
     Indication: Status migrainosus
     Route: 050
     Dates: start: 20190103
  34. BOTOX [Concomitant]
     Active Substance: ONABOTULINUMTOXINA
     Indication: Product used for unknown indication
     Dosage: 200 UNIT
     Route: 050
     Dates: start: 20180823
  35. IMITREX [Concomitant]
     Active Substance: SUMATRIPTAN SUCCINATE
     Indication: Status migrainosus
     Dosage: TAKE 1 TABLET AT ONSET OF HA PRN
     Route: 050
     Dates: start: 20180813
  36. ROBAXIN [Concomitant]
     Active Substance: METHOCARBAMOL
     Indication: Multiple sclerosis
     Route: 050
     Dates: start: 20180116
  37. ROBAXIN [Concomitant]
     Active Substance: METHOCARBAMOL
     Route: 050
  38. ULTRAM [Concomitant]
     Active Substance: TRAMADOL HYDROCHLORIDE
     Indication: Product used for unknown indication
     Route: 050
  39. UBRELVY [Concomitant]
     Active Substance: UBROGEPANT
     Indication: Product used for unknown indication
     Dosage: TAKE 100 (UNKNOWN UNIT) AT ONSET OF HA; CAN REPEAT IN 2 HR PRN
     Route: 050
     Dates: end: 20220201

REACTIONS (2)
  - Lymphopenia [Not Recovered/Not Resolved]
  - White blood cell count decreased [Not Recovered/Not Resolved]

NARRATIVE: CASE EVENT DATE: 20221201
